FAERS Safety Report 23498730 (Version 2)
Quarter: 2024Q2

REPORT INFORMATION
  Report Type: Spontaneous
  Country: CA (occurrence: CA)
  Receive Date: 20240208
  Receipt Date: 20240403
  Transmission Date: 20240715
  Serious: Yes (Hospitalization, Other)
  Sender: FDA-Public Use
  Company Number: CA-PFIZER INC-202400031271

PATIENT
  Age: 54 Year
  Weight: 79.83 kg

DRUGS (1)
  1. RUXIENCE [Suspect]
     Active Substance: RITUXIMAB-PVVR
     Indication: Granulomatosis with polyangiitis
     Dosage: 1000 MG, DAY 1
     Route: 042
     Dates: start: 202312

REACTIONS (6)
  - Acute kidney injury [Not Recovered/Not Resolved]
  - Dyspnoea [Unknown]
  - Lung disorder [Unknown]
  - Cardiac disorder [Unknown]
  - Off label use [Unknown]
  - Intentional product use issue [Unknown]
